FAERS Safety Report 7980180-1 (Version None)
Quarter: 2011Q4

REPORT INFORMATION
  Report Type: 
  Country: None (occurrence: None)
  Receive Date: 20111214
  Receipt Date: 20111207
  Transmission Date: 20120403
  Serious: Yes (Death)
  Sender: FDA-Public Use
  Company Number: US-ACTELION-A-US2011-58166

PATIENT

DRUGS (4)
  1. TRACLEER [Suspect]
     Indication: PULMONARY ARTERIAL HYPERTENSION
     Dosage: UNK MG, UNK
     Route: 048
     Dates: start: 20070412
  2. ADCIRCA [Concomitant]
  3. COUMADIN [Concomitant]
  4. LASIX [Concomitant]

REACTIONS (2)
  - PULMONARY ARTERIAL HYPERTENSION [None]
  - CARDIAC FAILURE CONGESTIVE [None]
